FAERS Safety Report 5757787-5 (Version None)
Quarter: 2008Q2

REPORT INFORMATION
  Report Type: 
  Country: None (occurrence: None)
  Receive Date: 20080603
  Receipt Date: 20080520
  Transmission Date: 20081010
  Serious: Yes (Other)
  Sender: FDA-Public Use
  Company Number: PHHY2008BR09406

PATIENT
  Sex: Male
  Weight: 36 kg

DRUGS (2)
  1. RITALIN [Suspect]
     Indication: PSYCHOMOTOR HYPERACTIVITY
     Dosage: 0.5 TABLET/DAY
     Route: 048
  2. RITALIN [Suspect]
     Dosage: 10 MG, QD
     Route: 048

REACTIONS (4)
  - AGITATION [None]
  - BIPOLAR DISORDER [None]
  - DISTURBANCE IN ATTENTION [None]
  - MOOD SWINGS [None]
